FAERS Safety Report 8798965 (Version 1)
Quarter: 2012Q4

REPORT INFORMATION
  Report Type: 
  Country: ES (occurrence: ES)
  Receive Date: 20120920
  Receipt Date: 20120920
  Transmission Date: 20130627
  Serious: Yes (Other)
  Sender: FDA-Public Use
  Company Number: ES-B.I. PHARMACEUTICALS,INC./RIDGEFIELD-2012-BP-23101YA

PATIENT
  Age: 71 Year
  Sex: Male

DRUGS (2)
  1. TAMSULOSINA [Suspect]
     Indication: BENIGN PROSTATIC HYPERPLASIA
     Dosage: 0.4 mg
     Route: 048
  2. RIVOTRIL (CLONAZEPAM) [Concomitant]
     Indication: RESTLESS LEGS SYNDROME

REACTIONS (1)
  - Restless legs syndrome [Not Recovered/Not Resolved]
